FAERS Safety Report 7135062-4 (Version None)
Quarter: 2010Q4

REPORT INFORMATION
  Report Type: 
  Country: None (occurrence: None)
  Receive Date: 20101203
  Receipt Date: 20100104
  Transmission Date: 20110411
  Serious: No
  Sender: FDA-Public Use
  Company Number: US-BRISTOL-MYERS SQUIBB COMPANY-14876726

PATIENT

DRUGS (1)
  1. VIDEX [Suspect]
     Route: 048

REACTIONS (2)
  - INTERCEPTED MEDICATION ERROR [None]
  - MEDICATION ERROR [None]
